FAERS Safety Report 6651530-3 (Version None)
Quarter: 2010Q1

REPORT INFORMATION
  Report Type: 
  Country: None (occurrence: None)
  Receive Date: 20100325
  Receipt Date: 20100318
  Transmission Date: 20100710
  Serious: Yes (Hospitalization)
  Sender: FDA-Public Use
  Company Number: A0850861A

PATIENT
  Age: 15 Year
  Sex: Female

DRUGS (3)
  1. ADVAIR DISKUS 100/50 [Suspect]
     Indication: ASTHMA
     Dosage: 1PUFF TWICE PER DAY
     Route: 055
     Dates: start: 20090701, end: 20100316
  2. DETROL [Concomitant]
  3. VITAMIN D [Concomitant]

REACTIONS (12)
  - BONE DENSITY DECREASED [None]
  - BONE PAIN [None]
  - CHEST DISCOMFORT [None]
  - EYE PAIN [None]
  - GAIT DISTURBANCE [None]
  - HEART RATE IRREGULAR [None]
  - IMPAIRED GASTRIC EMPTYING [None]
  - INSOMNIA [None]
  - NERVOUSNESS [None]
  - OSTEOPENIA [None]
  - PAIN [None]
  - VOMITING [None]
